FAERS Safety Report 9895890 (Version 2)
Quarter: 2014Q1

REPORT INFORMATION
  Report Type: Spontaneous
  Country: US (occurrence: US)
  Receive Date: 20140213
  Receipt Date: 20140213
  Transmission Date: 20141002
  Serious: No
  Sender: FDA-Public Use
  Company Number: US-BRISTOL-MYERS SQUIBB COMPANY-17301755

PATIENT
  Age: 58 Year
  Sex: Female

DRUGS (1)
  1. ORENCIA [Suspect]
     Indication: RHEUMATOID ARTHRITIS
     Dosage: DATE OF LAST INFU:15NOV2012?DATE OF LAST ORENCIA BY INJECTION:17JAN2013
     Route: 042
     Dates: start: 20121109

REACTIONS (1)
  - Infusion related reaction [Recovered/Resolved]
